FAERS Safety Report 9717945 (Version 1)
Quarter: 2013Q4

REPORT INFORMATION
  Report Type: Spontaneous
  Country: US (occurrence: US)
  Receive Date: 20131125
  Receipt Date: 20131125
  Transmission Date: 20140711
  Serious: No
  Sender: FDA-Public Use
  Company Number: US-VIVUS-2013V1000379

PATIENT
  Age: 56 Year
  Sex: Male

DRUGS (4)
  1. QSYMIA 3.75MG/23MG [Suspect]
     Indication: WEIGHT DECREASED
     Dosage: STARTED AROUND 17APR2013
     Route: 048
     Dates: start: 201304, end: 20130430
  2. QSYMIA 7.5MG/46MG [Suspect]
     Indication: WEIGHT DECREASED
     Route: 048
     Dates: start: 20130501
  3. EFFEXOR [Concomitant]
     Indication: DEPRESSION
     Route: 048
     Dates: start: 2003
  4. METFORMIN [Concomitant]
     Route: 048
     Dates: start: 2008

REACTIONS (1)
  - Hunger [Not Recovered/Not Resolved]
